FAERS Safety Report 23397679 (Version 6)
Quarter: 2024Q1

REPORT INFORMATION
  Report Type: Spontaneous
  Country: CA (occurrence: CA)
  Receive Date: 20240112
  Receipt Date: 20240202
  Transmission Date: 20240409
  Serious: No
  Sender: FDA-Public Use
  Company Number: CA-PFIZER INC-PV202400003160

PATIENT
  Age: 84 Year
  Sex: Male
  Weight: 63 kg

DRUGS (1)
  1. RUXIENCE [Suspect]
     Active Substance: RITUXIMAB-PVVR
     Indication: Acquired haemophilia
     Dosage: 600 MG, WEEKLY (650 MG AS PRESCRIBED)
     Dates: start: 20240117

REACTIONS (1)
  - Off label use [Unknown]

NARRATIVE: CASE EVENT DATE: 20240117
